FAERS Safety Report 21711566 (Version 1)
Quarter: 2022Q4

REPORT INFORMATION
  Report Type: Report from Study
  Country: ES (occurrence: ES)
  Receive Date: 20221212
  Receipt Date: 20221212
  Transmission Date: 20230113
  Serious: Yes (Hospitalization, Other)
  Sender: FDA-Public Use
  Company Number: ES-BRISTOL-MYERS SQUIBB COMPANY-2022-151299

PATIENT
  Age: 56 Year
  Sex: Male
  Weight: 86.4 kg

DRUGS (10)
  1. POMALIDOMIDE [Suspect]
     Active Substance: POMALIDOMIDE
     Indication: Plasma cell myeloma
     Dosage: MOST RECENT DOSE DATE 08-NOV-2022
     Route: 048
     Dates: start: 20211103, end: 20211123
  2. DEXAMETHASONE [Suspect]
     Active Substance: DEXAMETHASONE
     Indication: Plasma cell myeloma
     Dosage: MOST RECENT DOSE DATE: 04-NOV-2021
     Route: 048
     Dates: start: 20211103
  3. DARATUMUMAB [Suspect]
     Active Substance: DARATUMUMAB
     Indication: Plasma cell myeloma
     Route: 058
     Dates: start: 20211103
  4. APIXABAN [Concomitant]
     Active Substance: APIXABAN
     Indication: Deep vein thrombosis
     Route: 048
  5. OMEPRAZOLE [Concomitant]
     Active Substance: OMEPRAZOLE
     Indication: Gastrointestinal disorder therapy
     Route: 048
  6. ENALAPRIL [Concomitant]
     Active Substance: ENALAPRIL
     Indication: Hypertension
     Route: 048
  7. ACETAMINOPHEN [Concomitant]
     Active Substance: ACETAMINOPHEN
     Indication: Back pain
     Dosage: PRN
     Route: 048
  8. GRANULOCYTE MACROPHAGE COLONY STIMULATING FACTOR;MITUMPROTIMUT-T [Concomitant]
     Indication: Neutropenia
     Route: 058
     Dates: start: 20211124, end: 20211126
  9. GRANULOCYTE MACROPHAGE COLONY STIMULATING FACTOR;MITUMPROTIMUT-T [Concomitant]
     Route: 058
     Dates: start: 20211222, end: 20211224
  10. AMOXICILLIN [Concomitant]
     Active Substance: AMOXICILLIN
     Indication: Infection
     Dosage: 875/125
     Route: 048
     Dates: start: 20211215, end: 20211221

REACTIONS (2)
  - Tonsil cancer [Recovered/Resolved]
  - Post procedural haemorrhage [Unknown]

NARRATIVE: CASE EVENT DATE: 20211108
